FAERS Safety Report 10378734 (Version 1)
Quarter: 2014Q1

REPORT INFORMATION
  Report Type: Spontaneous
  Country: US (occurrence: None)
  Receive Date: 20140306
  Receipt Date: 20140306
  Transmission Date: 20141002
  Serious: Yes (Other)
  Sender: FDA-Public Use
  Company Number: 163-21880-13090990

PATIENT
  Age: 76 Year
  Sex: Male

DRUGS (5)
  1. REVLIMID (LENALIDOMIDE) (5 MILLIGRAM, CAPSULES) [Suspect]
     Indication: MYELODYSPLASTIC SYNDROME
     Route: 048
     Dates: start: 200903
  2. ALLOPURINOL [Concomitant]
  3. PRAVASTATIN [Concomitant]
  4. FUROSEMIDE [Concomitant]
  5. POTASSIUM ALGINATE (POTASSIUM) [Concomitant]

REACTIONS (3)
  - Haemoglobin decreased [None]
  - White blood cell count decreased [None]
  - Neutrophil count decreased [None]
